FAERS Safety Report 5031949-7 (Version None)
Quarter: 2006Q2

REPORT INFORMATION
  Report Type: 
  Country: None (occurrence: None)
  Receive Date: 20060621
  Receipt Date: 20051118
  Transmission Date: 20061013
  Serious: No
  Sender: FDA-Public Use
  Company Number: US-AMGEN-US158407

PATIENT
  Age: 14 Year
  Sex: Female

DRUGS (1)
  1. ARANESP [Suspect]
     Indication: RENAL FAILURE CHRONIC
     Route: 058

REACTIONS (4)
  - INJECTION SITE PAIN [None]
  - MIGRAINE [None]
  - MYALGIA [None]
  - NAUSEA [None]
